FAERS Safety Report 4435658-4 (Version None)
Quarter: 2004Q3

REPORT INFORMATION
  Report Type: 
  Country: None (occurrence: None)
  Receive Date: 20040726
  Receipt Date: 20040510
  Transmission Date: 20050211
  Serious: No
  Sender: FDA-Public Use
  Company Number: US_000744965

PATIENT
  Age: 74 Year
  Sex: Female
  Weight: 55 kg

DRUGS (3)
  1. EVISTA [Suspect]
     Indication: OSTEOPOROSIS
     Dosage: 60 MG/1 DAY
     Dates: start: 19990801
  2. FORTEO [Suspect]
     Dates: start: 20040419
  3. IPRIFLAVONE [Concomitant]

REACTIONS (2)
  - PAIN IN EXTREMITY [None]
  - PRURITUS GENERALISED [None]
